FAERS Safety Report 9599908 (Version 1)
Quarter: 2013Q4

REPORT INFORMATION
  Report Type: Spontaneous
  Country: US (occurrence: US)
  Receive Date: 20131004
  Receipt Date: 20131004
  Transmission Date: 20140711
  Serious: No
  Sender: FDA-Public Use
  Company Number: US-AMGEN-USASP2013031477

PATIENT
  Age: 33 Year
  Sex: Female
  Weight: 72.56 kg

DRUGS (3)
  1. ENBREL [Suspect]
     Indication: PRODUCT USED FOR UNKNOWN INDICATION
     Dosage: 50 MG, 2 TIMES/WK FOR THREE MONTHS
     Route: 058
  2. AMBIEN [Concomitant]
     Dosage: 5 MG, UNK
  3. LAMICTAL [Concomitant]
     Dosage: 25 MG, UNK

REACTIONS (6)
  - Pain in extremity [Unknown]
  - Swelling [Unknown]
  - Myalgia [Unknown]
  - Injection site reaction [Unknown]
  - Injection site erythema [Unknown]
  - Injection site pruritus [Unknown]
